FAERS Safety Report 20364818 (Version 1)
Quarter: 2022Q1

REPORT INFORMATION
  Report Type: Spontaneous
  Country: US (occurrence: US)
  Receive Date: 20220122
  Receipt Date: 20220122
  Transmission Date: 20220424
  Serious: No
  Sender: FDA-Public Use
  Company Number: US-SA-SAC20220118000271

PATIENT
  Age: 8 Year
  Sex: Female

DRUGS (1)
  1. DUPIXENT [Suspect]
     Active Substance: DUPILUMAB
     Dosage: FREQUENCY: OTHER 300MG/2ML
     Route: 058
     Dates: start: 202110

REACTIONS (2)
  - Pruritus [Recovering/Resolving]
  - Off label use of device [Unknown]

NARRATIVE: CASE EVENT DATE: 20211001
